FAERS Safety Report 20785345 (Version 2)
Quarter: 2022Q2

REPORT INFORMATION
  Report Type: Spontaneous
  Country: PL (occurrence: PL)
  Receive Date: 20220504
  Receipt Date: 20220516
  Transmission Date: 20220721
  Serious: Yes (Hospitalization, Other)
  Sender: FDA-Public Use
  Company Number: PL-GILEAD-2022-0580196

PATIENT
  Age: 31 Year
  Sex: Male

DRUGS (2)
  1. BIKTARVY [Suspect]
     Active Substance: BICTEGRAVIR SODIUM\EMTRICITABINE\TENOFOVIR ALAFENAMIDE FUMARATE
     Indication: HIV infection
     Dosage: UNK
     Route: 065
     Dates: start: 202007
  2. COVID-19 VACCINE [Concomitant]
     Dosage: 3 DOSES

REACTIONS (6)
  - Syphilis [Unknown]
  - Weight increased [Not Recovered/Not Resolved]
  - Dyslipidaemia [Recovering/Resolving]
  - Blood HIV RNA increased [Recovered/Resolved]
  - Alanine aminotransferase increased [Recovered/Resolved]
  - COVID-19 [Recovered/Resolved]

NARRATIVE: CASE EVENT DATE: 20200901
